FAERS Safety Report 4521057-3 (Version None)
Quarter: 2004Q4

REPORT INFORMATION
  Report Type: 
  Country: None (occurrence: None)
  Receive Date: 20041203
  Receipt Date: 20041129
  Transmission Date: 20050328
  Serious: Yes (Hospitalization)
  Sender: FDA-Public Use
  Company Number: GBWYE247601DEC04

PATIENT
  Age: 25 Year
  Sex: Male

DRUGS (8)
  1. EFFEXOR [Suspect]
     Dosage: 600MG
  2. CLOZARIL [Concomitant]
  3. METFORMIN HCL [Concomitant]
  4. ZOPICLONE (ZOPLICONE) [Concomitant]
  5. SULPRID (SULPIRIDE) [Concomitant]
  6. LAMOTRIGINE [Concomitant]
  7. ATENOLOL [Concomitant]
  8. ACAMPROSATE (ACAMPROSATE) [Concomitant]

REACTIONS (3)
  - METABOLIC ACIDOSIS [None]
  - OVERDOSE [None]
  - SOMNOLENCE [None]
